FAERS Safety Report 13363262 (Version 2)
Quarter: 2017Q2

REPORT INFORMATION
  Report Type: Spontaneous
  Country: US (occurrence: US)
  Receive Date: 20170323
  Receipt Date: 20170425
  Transmission Date: 20170830
  Serious: Yes (Other)
  Sender: FDA-Public Use
  Company Number: US-TEVA-751828USA

PATIENT
  Age: 61 Year
  Sex: Female

DRUGS (32)
  1. SYNTHROID [Concomitant]
     Active Substance: LEVOTHYROXINE SODIUM
  2. METOPROLOL TARTRATE. [Concomitant]
     Active Substance: METOPROLOL TARTRATE
  3. OMEGA 3 [Concomitant]
     Active Substance: OMEGA-3 FATTY ACIDS
  4. ASPIRIN. [Concomitant]
     Active Substance: ASPIRIN
  5. CALCIUM MAGNESIUM [Concomitant]
     Active Substance: CALCIUM\MAGNESIUM
  6. CANDESARTAN. [Concomitant]
     Active Substance: CANDESARTAN
  7. FOLIC ACID. [Concomitant]
     Active Substance: FOLIC ACID
  8. GARLIC. [Concomitant]
     Active Substance: GARLIC
  9. HYOSCYAMINE. [Concomitant]
     Active Substance: HYOSCYAMINE
  10. VITAMIN D3 [Concomitant]
     Active Substance: CHOLECALCIFEROL
  11. MUCINEX [Concomitant]
     Active Substance: GUAIFENESIN
  12. COPAXONE [Suspect]
     Active Substance: GLATIRAMER ACETATE
     Indication: MULTIPLE SCLEROSIS
     Dosage: DAILY
     Route: 058
     Dates: start: 20100119
  13. DOXAZOSIN [Concomitant]
     Active Substance: DOXAZOSIN\DOXAZOSIN MESYLATE
  14. METHYLPHENIDATE. [Concomitant]
     Active Substance: METHYLPHENIDATE
  15. METHYLPHENIDATE. [Concomitant]
     Active Substance: METHYLPHENIDATE
  16. BACLOFEN. [Concomitant]
     Active Substance: BACLOFEN
  17. AZITHROMYCIN ANHYDROUS. [Concomitant]
     Active Substance: AZITHROMYCIN ANHYDROUS
  18. COQ10 [Concomitant]
     Active Substance: UBIDECARENONE
  19. CRANBERRY. [Concomitant]
     Active Substance: CRANBERRY
  20. METFORMIN [Concomitant]
     Active Substance: METFORMIN HYDROCHLORIDE
  21. VITAMIN B [Concomitant]
     Active Substance: VITAMIN B
  22. GABAPENTIN. [Concomitant]
     Active Substance: GABAPENTIN
  23. R-TANNA [Concomitant]
     Active Substance: CHLORPHENIRAMINE TANNATE\PHENYLEPHRINE TANNATE
     Dosage: 9-25 MG
  24. VITAMIN B12 [Concomitant]
     Active Substance: CYANOCOBALAMIN
  25. CYCLOBENZAPRINE. [Concomitant]
     Active Substance: CYCLOBENZAPRINE
  26. JANUVIA [Concomitant]
     Active Substance: SITAGLIPTIN PHOSPHATE
  27. ARICEPT [Concomitant]
     Active Substance: DONEPEZIL HYDROCHLORIDE
  28. HYOSCYAMINE SULFATE. [Concomitant]
     Active Substance: HYOSCYAMINE SULFATE
  29. FISH OIL [Concomitant]
     Active Substance: FISH OIL
  30. TRAMADOL. [Concomitant]
     Active Substance: TRAMADOL
  31. POLYCARBOPHIL [Concomitant]
     Active Substance: POLYCARBOPHIL
  32. BENZONATATE. [Concomitant]
     Active Substance: BENZONATATE

REACTIONS (7)
  - Muscular weakness [Recovering/Resolving]
  - Injection site bruising [Recovering/Resolving]
  - Poor quality sleep [Recovering/Resolving]
  - Visual impairment [Recovering/Resolving]
  - Multiple sclerosis relapse [Recovering/Resolving]
  - Cognitive disorder [Recovering/Resolving]
  - Balance disorder [Recovering/Resolving]

NARRATIVE: CASE EVENT DATE: 201703
